FAERS Safety Report 4814321-1 (Version None)
Quarter: 2005Q4

REPORT INFORMATION
  Report Type: 
  Country: None (occurrence: None)
  Receive Date: 20051026
  Receipt Date: 20051012
  Transmission Date: 20060501
  Serious: Yes (Hospitalization)
  Sender: FDA-Public Use
  Company Number: 2005-01983

PATIENT
  Age: 66 Year
  Sex: Male
  Weight: 95 kg

DRUGS (9)
  1. VELCADE [Suspect]
     Indication: MULTIPLE MYELOMA
     Dosage: 2.40 MG, INTRAVENOUS
     Route: 042
     Dates: start: 20050624, end: 20050909
  2. PREDNISOLONE [Suspect]
     Indication: MULTIPLE MYELOMA
  3. ALLOPURINOL [Concomitant]
  4. FLUCONAZOLE [Concomitant]
  5. PERINDOPRIL (PERINDOPRIL) [Concomitant]
  6. INDAPAMIDE [Concomitant]
  7. ACYCLOVIR [Concomitant]
  8. PANTOPRAZOLE SODIUM [Concomitant]
  9. BACTRIM DS [Concomitant]

REACTIONS (19)
  - BACK PAIN [None]
  - BLOOD ALBUMIN INCREASED [None]
  - BLOOD LACTATE DEHYDROGENASE INCREASED [None]
  - CHEST X-RAY ABNORMAL [None]
  - DISEASE RECURRENCE [None]
  - DYSPNOEA [None]
  - HAEMATOCRIT DECREASED [None]
  - HAEMOGLOBIN DECREASED [None]
  - INTERNATIONAL NORMALISED RATIO INCREASED [None]
  - LYMPHOCYTE COUNT DECREASED [None]
  - MACROCYTOSIS [None]
  - MEAN CELL HAEMOGLOBIN INCREASED [None]
  - MEAN CELL VOLUME INCREASED [None]
  - MONOCYTOSIS [None]
  - NEUTROPHIL COUNT ABNORMAL [None]
  - NEUTROPHIL HYPERSEGMENTED MORPHOLOGY PRESENT [None]
  - PULMONARY EMBOLISM [None]
  - RED BLOOD CELL COUNT DECREASED [None]
  - TENDERNESS [None]
